FAERS Safety Report 8763814 (Version 2)
Quarter: 2013Q2

REPORT INFORMATION
  Report Type: Report from Study
  Country: FR (occurrence: FR)
  Receive Date: 20120831
  Receipt Date: 20130627
  Transmission Date: 20140414
  Serious: Yes (Hospitalization)
  Sender: FDA-Public Use
  Company Number: FR-009507513-2012SP030749

PATIENT
  Age: 38 Year
  Sex: Male
  Weight: 70 kg

DRUGS (8)
  1. BOCEPREVIR [Suspect]
     Indication: HEPATITIS C
     Dosage: 800 MG, TID
     Dates: start: 20120406
  2. PEGINTERFERON ALFA-2B [Suspect]
     Indication: HEPATITIS C
     Dosage: 120 ?G, QW
     Dates: start: 20120312
  3. RIBAVIRIN [Suspect]
     Indication: HEPATITIS C
     Dosage: 1200 MG, BID
     Dates: start: 20120312
  4. REYATAZ [Suspect]
     Indication: HIV INFECTION
     Dosage: 300 MG, QD
     Dates: start: 20110518
  5. NORVIR [Concomitant]
     Indication: HIV INFECTION
     Dosage: 100 ?G, UNK
     Dates: start: 20110515
  6. TRUVADA [Concomitant]
     Indication: HIV INFECTION
     Dosage: 1 DF, QD
     Dates: start: 20060615
  7. CRESTOR [Concomitant]
     Indication: DYSLIPIDAEMIA
     Dosage: 5 MG, QD
     Dates: start: 20091221
  8. METFORMIN HYDROCHLORIDE [Concomitant]
     Indication: DIABETES MELLITUS
     Dosage: 1000 MG, BID
     Dates: start: 20110923

REACTIONS (3)
  - Cholelithiasis [Recovered/Resolved]
  - Blood bilirubin increased [Recovered/Resolved]
  - Cell death [Recovered/Resolved]
